FAERS Safety Report 5289298-8 (Version None)
Quarter: 2007Q2

REPORT INFORMATION
  Report Type: 
  Country: None (occurrence: None)
  Receive Date: 20070404
  Receipt Date: 20070404
  Transmission Date: 20071010
  Serious: Yes (Life-Threatening, Hospitalization)
  Sender: FDA-Public Use
  Company Number: None

PATIENT
  Sex: Female
  Weight: 80 kg

DRUGS (1)
  1. ACYCLOVIR [Suspect]
     Indication: VIRAL INFECTION
     Dosage: 400MG EVERY 8 HOURS PO
     Route: 048
     Dates: start: 20061112, end: 20061113

REACTIONS (1)
  - STEVENS-JOHNSON SYNDROME [None]
